FAERS Safety Report 17304942 (Version 5)
Quarter: 2020Q2

REPORT INFORMATION
  Report Type: Spontaneous
  Country: US (occurrence: US)
  Receive Date: 20200123
  Receipt Date: 20200617
  Transmission Date: 20200713
  Serious: Yes (Other)
  Sender: FDA-Public Use
  Company Number: US-PFIZER INC-2020031884

PATIENT
  Age: 66 Year
  Sex: Female

DRUGS (1)
  1. XELJANZ XR [Suspect]
     Active Substance: TOFACITINIB CITRATE
     Indication: RHEUMATOID ARTHRITIS
     Dosage: 11 MG, DAILY
     Route: 048
     Dates: start: 201811, end: 202002

REACTIONS (4)
  - Vertigo [Recovered/Resolved]
  - COVID-19 [Unknown]
  - Toothache [Unknown]
  - Viral infection [Unknown]

NARRATIVE: CASE EVENT DATE: 2019
